FAERS Safety Report 7302021-8 (Version None)
Quarter: 2011Q1

REPORT INFORMATION
  Report Type: 
  Country: None (occurrence: None)
  Receive Date: 20110218
  Receipt Date: 20110216
  Transmission Date: 20110831
  Serious: Yes (Other)
  Sender: FDA-Public Use
  Company Number: US-PFIZER INC-2011034836

PATIENT
  Sex: Female
  Weight: 74.83 kg

DRUGS (3)
  1. GLUCOTROL XL [Suspect]
     Indication: DIABETES MELLITUS
     Dosage: 10 MG, DAILY
     Route: 048
     Dates: start: 19930101
  2. ACTOS [Concomitant]
     Dosage: 5 MG, UNK
  3. SITAGLIPTIN [Concomitant]
     Dosage: 100 MG, UNK

REACTIONS (3)
  - BLOOD CHOLESTEROL INCREASED [None]
  - HYPERTENSION [None]
  - MEDICATION RESIDUE [None]
